FAERS Safety Report 10026808 (Version 1)
Quarter: 2014Q1

REPORT INFORMATION
  Report Type: Report from Study
  Country: IL (occurrence: IL)
  Receive Date: 20140321
  Receipt Date: 20140321
  Transmission Date: 20141002
  Serious: Yes (Death, Other)
  Sender: FDA-Public Use
  Company Number: IL-ROCHE-1362656

PATIENT
  Sex: 0

DRUGS (6)
  1. BEVACIZUMAB [Suspect]
     Indication: COLORECTAL CANCER METASTATIC
     Route: 065
  2. OXALIPLATIN [Concomitant]
     Indication: COLORECTAL CANCER METASTATIC
  3. 5-FLUOROURACIL [Concomitant]
     Indication: COLORECTAL CANCER METASTATIC
  4. LEUCOVORIN [Concomitant]
     Indication: COLORECTAL CANCER METASTATIC
  5. IRINOTECAN [Concomitant]
     Indication: COLORECTAL CANCER METASTATIC
  6. CAPECITABINE [Concomitant]
     Indication: COLORECTAL CANCER METASTATIC
     Route: 065

REACTIONS (10)
  - Gastrointestinal perforation [Fatal]
  - Impaired healing [Fatal]
  - Haemorrhage [Fatal]
  - Hypertension [Unknown]
  - Embolism venous [Unknown]
  - Fistula [Unknown]
  - Embolism arterial [Unknown]
  - Cardiac failure congestive [Unknown]
  - Pulmonary embolism [Unknown]
  - Proteinuria [Unknown]
